FAERS Safety Report 19469151 (Version 1)
Quarter: 2021Q2

REPORT INFORMATION
  Report Type: Spontaneous
  Country: FR (occurrence: FR)
  Receive Date: 20210628
  Receipt Date: 20210628
  Transmission Date: 20210717
  Serious: Yes (Hospitalization)
  Sender: FDA-Public Use
  Company Number: FR-BAUSCH-BL-2021-021248

PATIENT
  Age: 85 Year
  Sex: Male
  Weight: 65 kg

DRUGS (7)
  1. MOVICOL [Concomitant]
     Active Substance: POLYETHYLENE GLYCOL 3350\POTASSIUM CHLORIDE\SODIUM BICARBONATE\SODIUM CHLORIDE
     Indication: PRODUCT USED FOR UNKNOWN INDICATION
  2. GENTAMICINE [Suspect]
     Active Substance: GENTAMICIN
     Indication: ENDOCARDITIS
     Dosage: 2G 6 TIMES A DAY
     Route: 042
     Dates: start: 20210315, end: 20210315
  3. PANTOPRAZOLE [Concomitant]
     Active Substance: PANTOPRAZOLE
     Indication: PRODUCT USED FOR UNKNOWN INDICATION
  4. AMIODARONE [Concomitant]
     Active Substance: AMIODARONE
     Indication: PRODUCT USED FOR UNKNOWN INDICATION
  5. ELIQUIS [Concomitant]
     Active Substance: APIXABAN
     Indication: PRODUCT USED FOR UNKNOWN INDICATION
  6. BISOPROLOL [Concomitant]
     Active Substance: BISOPROLOL
     Indication: PRODUCT USED FOR UNKNOWN INDICATION
  7. AMOXIC [AMOXICILLIN] [Suspect]
     Active Substance: AMOXICILLIN
     Indication: ENDOCARDITIS
     Dosage: 2G 6 TIMES A DAY
     Route: 042
     Dates: start: 20210314, end: 20210316

REACTIONS (3)
  - Acute kidney injury [Recovered/Resolved]
  - Renal tubular necrosis [Recovered/Resolved]
  - Crystalluria [Recovered/Resolved]

NARRATIVE: CASE EVENT DATE: 20210316
